FAERS Safety Report 25010551 (Version 1)
Quarter: 2025Q1

REPORT INFORMATION
  Report Type: Spontaneous
  Country: RO (occurrence: RO)
  Receive Date: 20250225
  Receipt Date: 20250225
  Transmission Date: 20250408
  Serious: Yes (Death, Other)
  Sender: NOVARTIS
  Company Number: RO-002147023-NVSC2025RO031475

PATIENT
  Age: 71 Year
  Sex: Female

DRUGS (2)
  1. KISQALI [Suspect]
     Active Substance: RIBOCICLIB
     Indication: Invasive breast carcinoma
     Dosage: 200 MG, TID (21 DAYS), Q28 DAYS (CYCLE IS REPEATED EVERY 28 DAYS)
     Route: 065
     Dates: start: 202406, end: 202412
  2. FASLODEX [Concomitant]
     Active Substance: FULVESTRANT
     Indication: Product used for unknown indication
     Route: 065
     Dates: start: 202406, end: 202412

REACTIONS (5)
  - Influenza [Fatal]
  - Thrombocytopenia [Unknown]
  - Anaemia [Unknown]
  - Aspartate aminotransferase increased [Not Recovered/Not Resolved]
  - Hepatic lesion [Unknown]

NARRATIVE: CASE EVENT DATE: 20240701
